FAERS Safety Report 8374083-0 (Version None)
Quarter: 2012Q2

REPORT INFORMATION
  Report Type: 
  Country: None (occurrence: None)
  Receive Date: 20120518
  Receipt Date: 20120518
  Transmission Date: 20120825
  Serious: Yes (Disabling)
  Sender: FDA-Public Use
  Company Number: None

PATIENT
  Age: 65 Year
  Sex: Female
  Weight: 70.3075 kg

DRUGS (1)
  1. LIPITOR [Suspect]
     Indication: BLOOD CHOLESTEROL
     Dosage: 20 MG DAILY 1X ORAL
     Route: 048

REACTIONS (11)
  - MUSCULAR WEAKNESS [None]
  - IMPAIRED WORK ABILITY [None]
  - ABASIA [None]
  - DYSPHAGIA [None]
  - MYALGIA [None]
  - ACTIVITIES OF DAILY LIVING IMPAIRED [None]
  - FATIGUE [None]
  - FALL [None]
  - MYOPATHY [None]
  - COORDINATION ABNORMAL [None]
  - ASTHENIA [None]
